FAERS Safety Report 8975648 (Version 1)
Quarter: 2012Q4

REPORT INFORMATION
  Report Type: 
  Country: US (occurrence: US)
  Receive Date: 20121219
  Receipt Date: 20121219
  Transmission Date: 20130627
  Serious: Yes (Other)
  Sender: FDA-Public Use
  Company Number: US-ROCHE-1166209

PATIENT
  Age: 41 Year
  Sex: Female
  Weight: 63.11 kg

DRUGS (4)
  1. HERCEPTIN [Suspect]
     Indication: BREAST CANCER
     Route: 042
     Dates: start: 20120706, end: 20121207
  2. XELODA [Suspect]
     Indication: BREAST CANCER
     Route: 048
     Dates: start: 20120426, end: 20121201
  3. XELODA [Suspect]
     Route: 048
     Dates: start: 20120426, end: 20121201
  4. LAPATINIB [Concomitant]
     Indication: BREAST CANCER

REACTIONS (3)
  - Pleural effusion [Not Recovered/Not Resolved]
  - Disease progression [Unknown]
  - Dyspnoea [Not Recovered/Not Resolved]
